FAERS Safety Report 7638260-6 (Version None)
Quarter: 2011Q3

REPORT INFORMATION
  Report Type: 
  Country: None (occurrence: None)
  Receive Date: 20110720
  Receipt Date: 20110714
  Transmission Date: 20111222
  Serious: Yes (Other)
  Sender: FDA-Public Use
  Company Number: 2011SP033057

PATIENT
  Sex: Female

DRUGS (1)
  1. SAPHRIS [Suspect]
     Indication: PRODUCT USED FOR UNKNOWN INDICATION
     Dosage: 5 MG;BID;SL
     Route: 060

REACTIONS (4)
  - HYPERHIDROSIS [None]
  - ANAPHYLACTIC REACTION [None]
  - BURNING SENSATION [None]
  - FEELING OF BODY TEMPERATURE CHANGE [None]
